FAERS Safety Report 9298171 (Version 2)
Quarter: 2013Q2

REPORT INFORMATION
  Report Type: Spontaneous
  Country: US (occurrence: None)
  Receive Date: 20130515
  Receipt Date: 20130606
  Transmission Date: 20140414
  Serious: Yes (Other)
  Sender: FDA-Public Use
  Company Number: JPI-P-031700

PATIENT
  Age: 30 Year
  Sex: Female
  Weight: 77.11 kg

DRUGS (2)
  1. XYREM [Suspect]
     Indication: CATAPLEXY
     Dosage: (3.35 GM, 2 IN 1 D)
     Route: 048
     Dates: start: 20130404, end: 2013
  2. FLUOXETINE HYDROCHLORIDE [Concomitant]

REACTIONS (5)
  - Neck pain [None]
  - Musculoskeletal pain [None]
  - Pain in extremity [None]
  - Weight decreased [None]
  - Road traffic accident [None]
